FAERS Safety Report 16294608 (Version 3)
Quarter: 2020Q4

REPORT INFORMATION
  Report Type: Spontaneous
  Country: US (occurrence: US)
  Receive Date: 20190509
  Receipt Date: 20201203
  Transmission Date: 20210113
  Serious: Yes (Other)
  Sender: FDA-Public Use
  Company Number: US-ROCHE-2110917

PATIENT
  Age: 72 Year
  Sex: Female

DRUGS (11)
  1. ESBRIET [Suspect]
     Active Substance: PIRFENIDONE
     Indication: IDIOPATHIC PULMONARY FIBROSIS
     Dosage: 3 CAPSULES THREE TIME IN A DAY WITH MEALS
     Route: 048
     Dates: start: 20180105
  2. VITAMIN D3 [Concomitant]
     Active Substance: CHOLECALCIFEROL
  3. VITAMIN D3 [Concomitant]
     Active Substance: CHOLECALCIFEROL
  4. ZINC. [Concomitant]
     Active Substance: ZINC
  5. ESBRIET [Suspect]
     Active Substance: PIRFENIDONE
     Dosage: 3 CAPSULES BY MOUTH THREE TIMES A DAY
     Route: 048
  6. VITAMIN C [Concomitant]
     Active Substance: ASCORBIC ACID
  7. VITAMIN K2 [Concomitant]
     Active Substance: MENAQUINONE 6
  8. ALPHA LIPOIC ACID [Concomitant]
     Active Substance: .ALPHA.-LIPOIC ACID
  9. BACITRACIN. [Concomitant]
     Active Substance: BACITRACIN
  10. ESBRIET [Suspect]
     Active Substance: PIRFENIDONE
     Indication: INTERSTITIAL LUNG DISEASE
     Dosage: 3 CAPSULES BY MOUTH WITH MEALS
     Route: 048
     Dates: start: 20180103
  11. MAGNESIUM [Concomitant]
     Active Substance: MAGNESIUM
     Dosage: CAP 500

REACTIONS (23)
  - Abdominal discomfort [Not Recovered/Not Resolved]
  - Gastrooesophageal reflux disease [Not Recovered/Not Resolved]
  - Constipation [Not Recovered/Not Resolved]
  - Chest pain [Not Recovered/Not Resolved]
  - Tinnitus [Not Recovered/Not Resolved]
  - Cough [Not Recovered/Not Resolved]
  - Meniere^s disease [Not Recovered/Not Resolved]
  - Disturbance in attention [Not Recovered/Not Resolved]
  - Weight decreased [Not Recovered/Not Resolved]
  - Cough [Not Recovered/Not Resolved]
  - Insomnia [Unknown]
  - Diarrhoea [Unknown]
  - Dizziness [Not Recovered/Not Resolved]
  - Panic reaction [Unknown]
  - Insomnia [Not Recovered/Not Resolved]
  - Diarrhoea [Not Recovered/Not Resolved]
  - Vomiting [Not Recovered/Not Resolved]
  - Bronchiolitis [Not Recovered/Not Resolved]
  - Dyspepsia [Not Recovered/Not Resolved]
  - Upper respiratory tract infection [Not Recovered/Not Resolved]
  - Dyspnoea [Not Recovered/Not Resolved]
  - Respiration abnormal [Unknown]
  - Nausea [Not Recovered/Not Resolved]

NARRATIVE: CASE EVENT DATE: 20180112
